FAERS Safety Report 19661062 (Version 1)
Quarter: 2021Q3

REPORT INFORMATION
  Report Type: Spontaneous
  Country: US (occurrence: US)
  Receive Date: 20210805
  Receipt Date: 20210805
  Transmission Date: 20211014
  Serious: Yes (Other)
  Sender: FDA-Public Use
  Company Number: None

PATIENT
  Age: 59 Year
  Sex: Female
  Weight: 63.45 kg

DRUGS (2)
  1. ALORA [Suspect]
     Active Substance: ESTRADIOL
     Indication: MENOPAUSAL SYMPTOMS
     Dosage: ?          OTHER FREQUENCY:TWICE A WEEK;?
     Route: 062
     Dates: start: 20210702, end: 20210720
  2. ESTRADIOL 0.1 MG/24 HR WEEKLY TRANSDERMAL PATCH [Concomitant]
     Dates: start: 20210702, end: 20210720

REACTIONS (3)
  - Application site pruritus [None]
  - Application site erythema [None]
  - Dermatitis contact [None]

NARRATIVE: CASE EVENT DATE: 20210720
